FAERS Safety Report 4484828-8 (Version None)
Quarter: 2004Q4

REPORT INFORMATION
  Report Type: 
  Country: None (occurrence: None)
  Receive Date: 20041025
  Receipt Date: 20041018
  Transmission Date: 20050328
  Serious: Yes (Hospitalization)
  Sender: FDA-Public Use
  Company Number: US-MERCK-0410USA02763

PATIENT
  Sex: Female

DRUGS (5)
  1. VIOXX [Suspect]
     Indication: BACK PAIN
     Route: 048
     Dates: start: 20030101, end: 20040101
  2. LIPITOR [Concomitant]
     Route: 065
  3. LEXAPRO [Concomitant]
     Route: 065
  4. LISINOPRIL [Concomitant]
     Route: 065
  5. ACTONEL [Concomitant]
     Route: 065

REACTIONS (2)
  - ANAEMIA [None]
  - GASTRIC ULCER [None]
